FAERS Safety Report 8286786-7 (Version None)
Quarter: 2012Q2

REPORT INFORMATION
  Report Type: 
  Country: None (occurrence: None)
  Receive Date: 20120416
  Receipt Date: 20120410
  Transmission Date: 20120825
  Serious: Yes (Other)
  Sender: FDA-Public Use
  Company Number: US-AMGEN-USASP2012013285

PATIENT
  Age: 66 Year
  Sex: Male
  Weight: 92.5 kg

DRUGS (10)
  1. ARANESP [Suspect]
     Dosage: 140 MUG, QWK
     Route: 058
     Dates: start: 20120201, end: 20120313
  2. LISINOPRIL [Concomitant]
     Dosage: 30 MG, UNK
  3. LEVOTHYROXINE SODIUM [Concomitant]
     Dosage: UNK
  4. CYCLOSPORINE [Concomitant]
     Indication: PROPHYLAXIS AGAINST TRANSPLANT REJECTION
     Dosage: UNK
  5. TRAZODONE HCL [Concomitant]
     Dosage: 50 MG, UNK
  6. SIMVASTATIN [Concomitant]
     Dosage: 20 MG, QD
  7. CELLCEPT [Concomitant]
     Indication: PROPHYLAXIS AGAINST TRANSPLANT REJECTION
     Dosage: UNK UNK, BID
  8. CLONIDINE [Concomitant]
     Dosage: UNK UNK, BID
  9. PROZAC [Concomitant]
     Dosage: 20 MG, QHS
  10. ARANESP [Suspect]
     Indication: ANAEMIA
     Dosage: 60 MUG, QWK
     Route: 058
     Dates: start: 20110623, end: 20120131

REACTIONS (2)
  - THERAPEUTIC RESPONSE DECREASED [None]
  - ANAEMIA [None]
